FAERS Safety Report 9146853 (Version 1)
Quarter: 2013Q1

REPORT INFORMATION
  Report Type: Spontaneous
  Country: FR (occurrence: FR)
  Receive Date: 20130307
  Receipt Date: 20130307
  Transmission Date: 20140127
  Serious: Yes (Hospitalization)
  Sender: FDA-Public Use
  Company Number: FR-ROCHE-1198244

PATIENT
  Age: 43 Year
  Sex: Male

DRUGS (6)
  1. NAPROXEN [Suspect]
     Indication: BACK PAIN
     Route: 048
     Dates: start: 20121213, end: 20121219
  2. ACTISKENAN [Suspect]
     Indication: BACK PAIN
     Route: 048
     Dates: start: 20121221, end: 20121224
  3. ACUPAN [Suspect]
     Indication: BACK PAIN
     Route: 041
     Dates: start: 20121221, end: 20121227
  4. LAMALINE [Suspect]
     Indication: BACK PAIN
     Route: 048
     Dates: start: 20121213, end: 20121219
  5. TETRAZEPAM [Suspect]
     Indication: BACK PAIN
     Route: 048
     Dates: start: 20121213, end: 20121219
  6. DOLIPRANE [Suspect]
     Indication: BACK PAIN
     Route: 048
     Dates: start: 20121222, end: 20121222

REACTIONS (1)
  - Hepatocellular injury [Recovered/Resolved]
